FAERS Safety Report 9568112 (Version 1)
Quarter: 2013Q3

REPORT INFORMATION
  Report Type: Spontaneous
  Country: US (occurrence: US)
  Receive Date: 20130930
  Receipt Date: 20130930
  Transmission Date: 20140515
  Serious: No
  Sender: FDA-Public Use
  Company Number: US-AMGEN-USASP2013055247

PATIENT
  Age: 40 Year
  Sex: Male
  Weight: 77.1 kg

DRUGS (6)
  1. ENBREL [Suspect]
     Indication: PRODUCT USED FOR UNKNOWN INDICATION
     Dosage: 50 MG, QWK
     Route: 058
  2. HUMIRA [Concomitant]
     Dosage: 40 MG/0.8
  3. METHOTREXATE [Concomitant]
     Dosage: 50 MG/ 2ML
  4. PREDNISONE [Concomitant]
     Dosage: 10 MG, UNK
  5. FOLIC ACID [Concomitant]
     Dosage: UNK
  6. ONE DAILY                          /01824901/ [Concomitant]
     Dosage: UNK

REACTIONS (1)
  - Rash [Unknown]
